FAERS Safety Report 19162949 (Version 2)
Quarter: 2021Q2

REPORT INFORMATION
  Report Type: Spontaneous
  Country: US (occurrence: US)
  Receive Date: 20210421
  Receipt Date: 20210501
  Transmission Date: 20210717
  Serious: Yes (Other)
  Sender: FDA-Public Use
  Company Number: US-ROCHE-2809375

PATIENT
  Sex: Female
  Weight: 65.83 kg

DRUGS (1)
  1. OCREVUS [Suspect]
     Active Substance: OCRELIZUMAB
     Indication: RELAPSING MULTIPLE SCLEROSIS
     Route: 065

REACTIONS (7)
  - Therapeutic product ineffective [Unknown]
  - Stress [Unknown]
  - Euphoric mood [Unknown]
  - Feeling abnormal [Unknown]
  - Multiple sclerosis relapse [Unknown]
  - Anxiety [Unknown]
  - Fatigue [Unknown]
